FAERS Safety Report 6460391-7 (Version None)
Quarter: 2009Q4

REPORT INFORMATION
  Report Type: 
  Country: None (occurrence: None)
  Receive Date: 20091123
  Receipt Date: 20091110
  Transmission Date: 20100525
  Serious: Yes (Life-Threatening, Other)
  Sender: FDA-Public Use
  Company Number: 09US005101

PATIENT
  Sex: Male

DRUGS (1)
  1. NAPROXEN SODIUM-PSEUDOPHDRINE HYDROCHLORIDE ER 253(NAPROXEN SODIUM 220 [Suspect]
     Indication: DRUG USE FOR UNKNOWN INDICATION
     Dosage: ORAL
     Route: 048

REACTIONS (1)
  - APPARENT DEATH [None]
